FAERS Safety Report 10886654 (Version 1)
Quarter: 2015Q1

REPORT INFORMATION
  Report Type: Spontaneous
  Country: US (occurrence: US)
  Receive Date: 20150304
  Receipt Date: 20150304
  Transmission Date: 20150721
  Serious: No
  Sender: FDA-Public Use
  Company Number: US-GLAXOSMITHKLINE-US2015006747

PATIENT
  Age: 76 Year
  Sex: Female

DRUGS (5)
  1. DEXILANT [Concomitant]
     Active Substance: DEXLANSOPRAZOLE
  2. ADVAIR DISKUS [Suspect]
     Active Substance: FLUTICASONE PROPIONATE\SALMETEROL XINAFOATE
     Indication: PRODUCT USED FOR UNKNOWN INDICATION
  3. PREDNISONE. [Suspect]
     Active Substance: PREDNISONE
     Indication: PRODUCT USED FOR UNKNOWN INDICATION
  4. BREO ELLIPTA [Suspect]
     Active Substance: FLUTICASONE FUROATE\VILANTEROL TRIFENATATE
     Indication: PAINFUL RESPIRATION
     Dosage: 1 PUFF(S), QD
     Route: 055
     Dates: start: 20141118
  5. COZAAR [Concomitant]
     Active Substance: LOSARTAN POTASSIUM

REACTIONS (9)
  - Rhinorrhoea [Unknown]
  - Blood pressure increased [Unknown]
  - Upper respiratory tract infection [Unknown]
  - Respiratory tract congestion [Unknown]
  - Insomnia [Unknown]
  - Cough [Unknown]
  - Condition aggravated [Unknown]
  - Dyspnoea [Unknown]
  - Influenza [Unknown]

NARRATIVE: CASE EVENT DATE: 20141201
